FAERS Safety Report 21747711 (Version 3)
Quarter: 2025Q1

REPORT INFORMATION
  Report Type: Spontaneous
  Country: GB (occurrence: GB)
  Receive Date: 20221219
  Receipt Date: 20250117
  Transmission Date: 20250409
  Serious: Yes (Death, Hospitalization, Other)
  Sender: TEVA
  Company Number: GB-Hikma Pharmaceuticals USA Inc.-GB-H14001-22-02294

PATIENT
  Age: 60 Year
  Sex: Male
  Weight: 58 kg

DRUGS (13)
  1. PACLITAXEL [Suspect]
     Active Substance: PACLITAXEL
     Indication: Anal squamous cell carcinoma
     Dosage: DOSAGE REGIMEN #1, FREQUENCY TEXT: DAY1,8,15 OF EACH 28-DAY CYCLE (6 CYCLES)
     Route: 042
     Dates: start: 20230623
  2. CARBOPLATIN [Suspect]
     Active Substance: CARBOPLATIN
     Indication: Anal squamous cell carcinoma
     Dosage: DOSAGE REGIMEN #1DAILY DOSE TEXT : AUC 5 MG/ML PER MINUTEFREQUENCY TEXT : ON DAY 1 OF EACH 28-DAY...
     Route: 042
     Dates: start: 20230623
  3. ACETAMINOPHEN [Concomitant]
     Active Substance: ACETAMINOPHEN
     Indication: Product used for unknown indication
     Dates: start: 20210527
  4. OMEPRAZOLE [Concomitant]
     Active Substance: OMEPRAZOLE
     Indication: Product used for unknown indication
     Dates: start: 20220427
  5. LOPERAMIDE [Concomitant]
     Active Substance: LOPERAMIDE
     Indication: Product used for unknown indication
     Dates: start: 20220618, end: 20220705
  6. AMITRIPTYLINE [Concomitant]
     Active Substance: AMITRIPTYLINE
     Indication: Product used for unknown indication
     Dates: start: 20210517
  7. HYOSYNE [Concomitant]
     Active Substance: HYOSCYAMINE SULFATE
     Indication: Product used for unknown indication
     Dates: start: 20220803
  8. FAMOTIDINE [Concomitant]
     Active Substance: FAMOTIDINE
     Indication: Product used for unknown indication
     Dates: start: 20220803
  9. GABAPENTIN [Concomitant]
     Active Substance: GABAPENTIN
     Indication: Product used for unknown indication
     Dates: start: 20210527
  10. RETIFANLIMAB [Suspect]
     Active Substance: RETIFANLIMAB
     Indication: Anal squamous cell carcinoma
     Route: 042
     Dates: start: 20220623
  11. RETIFANLIMAB [Suspect]
     Active Substance: RETIFANLIMAB
     Indication: Anal squamous cell carcinoma
     Route: 042
     Dates: start: 20220915
  12. MORPHINE SULFATE [Concomitant]
     Active Substance: MORPHINE SULFATE
     Indication: Product used for unknown indication
     Dates: start: 20220422
  13. CODEINE [Concomitant]
     Active Substance: CODEINE
     Indication: Product used for unknown indication
     Dates: start: 20220615, end: 20220701

REACTIONS (6)
  - Disease progression [Fatal]
  - Food intolerance [Unknown]
  - Abdominal distension [Unknown]
  - Intestinal obstruction [Recovered/Resolved]
  - Nausea [Unknown]
  - Stoma creation [Unknown]

NARRATIVE: CASE EVENT DATE: 20220727
